FAERS Safety Report 6811491-0 (Version None)
Quarter: 2010Q2

REPORT INFORMATION
  Report Type: 
  Country: None (occurrence: None)
  Receive Date: 20100629
  Receipt Date: 20100629
  Transmission Date: 20101027
  Serious: Yes (Other)
  Sender: FDA-Public Use
  Company Number: None

PATIENT
  Age: 55 Year
  Sex: Female
  Weight: 68.0396 kg

DRUGS (1)
  1. REGLAN [Suspect]
     Dosage: 1 TABLET 3 TIMS A DAY PO
     Route: 048
     Dates: start: 20060301, end: 20100315

REACTIONS (6)
  - AMNESIA [None]
  - DISTURBANCE IN ATTENTION [None]
  - DYSKINESIA [None]
  - INSOMNIA [None]
  - SWOLLEN TONGUE [None]
  - TREMOR [None]
